FAERS Safety Report 22596582 (Version 1)
Quarter: 2023Q2

REPORT INFORMATION
  Report Type: Spontaneous
  Country: US (occurrence: US)
  Receive Date: 20230613
  Receipt Date: 20230613
  Transmission Date: 20230721
  Serious: No
  Sender: FDA-Public Use
  Company Number: US-REVANCE THERAPEUTICS INC.-US-REV-2023-000098

PATIENT

DRUGS (4)
  1. DAXIBOTULINUMTOXIN A-LANM [Suspect]
     Active Substance: DAXIBOTULINUMTOXIN A-LANM
     Indication: Product used for unknown indication
     Dosage: 110 UNITS
     Dates: start: 20230227, end: 20230227
  2. DAXIBOTULINUMTOXIN A-LANM [Suspect]
     Active Substance: DAXIBOTULINUMTOXIN A-LANM
     Dosage: 8 UNITS
     Dates: start: 20230321
  3. TRAZODONE [Concomitant]
     Active Substance: TRAZODONE HYDROCHLORIDE
     Indication: Product used for unknown indication
     Dosage: UNK, PRN AT BEDTIME
  4. POLYLACTIDE, L- [Concomitant]
     Active Substance: POLYLACTIDE, L-
     Indication: Product used for unknown indication
     Dosage: 1 VIAL
     Route: 065
     Dates: start: 20230321

REACTIONS (10)
  - Migraine [Recovering/Resolving]
  - Injection site swelling [Recovering/Resolving]
  - Pruritus [Recovering/Resolving]
  - Injection site hypersensitivity [Recovering/Resolving]
  - Injection site erythema [Recovering/Resolving]
  - Photophobia [Recovering/Resolving]
  - Injection site oedema [Recovering/Resolving]
  - Headache [Recovering/Resolving]
  - Facial discomfort [Recovering/Resolving]
  - Off label use [Unknown]

NARRATIVE: CASE EVENT DATE: 20230227
